FAERS Safety Report 5953024-7 (Version None)
Quarter: 2008Q4

REPORT INFORMATION
  Report Type: 
  Country: None (occurrence: None)
  Receive Date: 20081114
  Receipt Date: 20080922
  Transmission Date: 20090506
  Serious: Yes (Hospitalization)
  Sender: FDA-Public Use
  Company Number: US-BRISTOL-MYERS SQUIBB COMPANY-14319289

PATIENT
  Age: 54 Year
  Sex: Female

DRUGS (2)
  1. IXEMPRA KIT [Suspect]
     Indication: BREAST CANCER METASTATIC
     Dosage: INITIATED JUN 2008 77 MG IV OVER 3 HOURS, ALSO GIVEN ON 17-MAY-08, 07-JUN-08.
     Route: 042
     Dates: start: 20080623, end: 20080623
  2. NEULASTA [Concomitant]

REACTIONS (2)
  - COLITIS [None]
  - CONSTIPATION [None]
